FAERS Safety Report 20738158 (Version 2)
Quarter: 2022Q2

REPORT INFORMATION
  Report Type: Other
  Country: TR (occurrence: None)
  Receive Date: 20220422
  Receipt Date: 20220427
  Transmission Date: 20220720
  Serious: Yes (Hospitalization)
  Sender: FDA-Public Use
  Company Number: TR-ROCHE-2935496

PATIENT
  Age: 58 Year
  Sex: Female
  Weight: 72 kg

DRUGS (6)
  1. OCRELIZUMAB [Suspect]
     Active Substance: OCRELIZUMAB
     Indication: Secondary progressive multiple sclerosis
     Dosage: DOSE LAST STUDY DRUG ADMIN PRIOR AE AND SAE: 600 MG, START DATE OF MOST RECENT DOSE OF STUDY DRUG PR
     Route: 042
     Dates: start: 20190307
  2. PHENIRAMINE [Concomitant]
     Active Substance: PHENIRAMINE
     Dosage: DOSE: 1 AMPULE
     Route: 042
     Dates: start: 20210910, end: 20210910
  3. PHENIRAMINE [Concomitant]
     Active Substance: PHENIRAMINE
     Dosage: 1 AMPULE
     Route: 042
     Dates: start: 20220325, end: 20220325
  4. METHYLPREDNISOLONE [Concomitant]
     Active Substance: METHYLPREDNISOLONE
     Dosage: DOT: 25/MAR/2022
     Route: 042
     Dates: start: 20210910, end: 20210910
  5. ESOMEPRAZOLE [Concomitant]
     Active Substance: ESOMEPRAZOLE
     Dosage: ONCE BEFORE INFUSION
     Route: 042
     Dates: start: 20210910, end: 20210910
  6. PANTOPRAZOLE [Concomitant]
     Active Substance: PANTOPRAZOLE
     Route: 042
     Dates: start: 20220325, end: 20220325

REACTIONS (1)
  - Urinary tract infection [Recovered/Resolved]

NARRATIVE: CASE EVENT DATE: 20211005
